FAERS Safety Report 11786567 (Version 2)
Quarter: 2015Q4

REPORT INFORMATION
  Report Type: Spontaneous
  Country: DE (occurrence: DE)
  Receive Date: 20151130
  Receipt Date: 20151207
  Transmission Date: 20160305
  Serious: Yes (Other)
  Sender: FDA-Public Use
  Company Number: DE-TAKEDA-2015TUS017087

PATIENT
  Age: 23 Year
  Sex: Female

DRUGS (4)
  1. BRINTELLIX [Suspect]
     Active Substance: VORTIOXETINE HYDROBROMIDE
     Indication: DEPRESSION
     Dosage: 10 MG, QD
     Route: 048
     Dates: start: 20150702
  2. SEROQUEL [Suspect]
     Active Substance: QUETIAPINE FUMARATE
     Indication: CYCLOTHYMIC DISORDER
     Dosage: 75 MG, QD
     Route: 065
     Dates: start: 20131217
  3. QUILONUM [Concomitant]
     Active Substance: LITHIUM CARBONATE
     Indication: CYCLOTHYMIC DISORDER
     Dosage: 62.5 MG, QD
     Route: 048
     Dates: start: 20130920
  4. ESCITALOPRAM [Suspect]
     Active Substance: ESCITALOPRAM OXALATE
     Indication: DEPRESSION SUICIDAL
     Dosage: 20 MG, QD
     Route: 065

REACTIONS (2)
  - Liver injury [Recovering/Resolving]
  - Hepatic enzyme increased [Recovering/Resolving]

NARRATIVE: CASE EVENT DATE: 20151104
